FAERS Safety Report 7251732-1 (Version None)
Quarter: 2011Q1

REPORT INFORMATION
  Report Type: 
  Country: None (occurrence: None)
  Receive Date: 20110128
  Receipt Date: 20110118
  Transmission Date: 20110831
  Serious: Yes (Hospitalization, Other)
  Sender: FDA-Public Use
  Company Number: US-MERCK-0805USA00923

PATIENT
  Age: 81 Year
  Sex: Female
  Weight: 65 kg

DRUGS (5)
  1. [THERAPY UNSPECIFIED] [Concomitant]
     Indication: RHEUMATOID ARTHRITIS
     Route: 065
     Dates: start: 19810101
  2. FOSAMAX [Suspect]
     Indication: OSTEOPOROSIS
     Route: 048
     Dates: start: 20040801, end: 20060701
  3. BONIVA [Suspect]
     Indication: OSTEOPOROSIS
     Route: 065
     Dates: start: 20060712, end: 20071101
  4. [THERAPY UNSPECIFIED] [Concomitant]
     Indication: HYPERTENSION
     Route: 065
  5. LEVOTHYROXINE SODIUM [Concomitant]
     Indication: HYPOTHYROIDISM
     Route: 065

REACTIONS (40)
  - OSTEONECROSIS OF JAW [None]
  - RENAL FAILURE ACUTE [None]
  - CLOSTRIDIUM DIFFICILE COLITIS [None]
  - CARDIAC MURMUR [None]
  - DRUG INTOLERANCE [None]
  - IMPAIRED HEALING [None]
  - HYPERTENSION [None]
  - CONFUSIONAL STATE [None]
  - BLOOD CREATININE INCREASED [None]
  - DEHYDRATION [None]
  - HYPERCALCAEMIA [None]
  - DECREASED APPETITE [None]
  - DYSPNOEA [None]
  - ORAL INFECTION [None]
  - HYPERLIPIDAEMIA [None]
  - SPONDYLOLYSIS [None]
  - MUSCULOSKELETAL PAIN [None]
  - OSTEOMYELITIS CHRONIC [None]
  - VERTIGO POSITIONAL [None]
  - WHITE BLOOD CELL COUNT INCREASED [None]
  - TOOTH LOSS [None]
  - BLOOD POTASSIUM DECREASED [None]
  - ANAEMIA OF CHRONIC DISEASE [None]
  - ARTHRITIS [None]
  - GASTROOESOPHAGEAL REFLUX DISEASE [None]
  - FATIGUE [None]
  - SACROILIITIS [None]
  - OSTEOMYELITIS [None]
  - GINGIVAL DISORDER [None]
  - CERUMEN IMPACTION [None]
  - SEPSIS [None]
  - DRUG HYPERSENSITIVITY [None]
  - NECK PAIN [None]
  - MUSCLE SPASMS [None]
  - GASTROENTERITIS [None]
  - WEIGHT DECREASED [None]
  - CATARACT [None]
  - CHEST PAIN [None]
  - VIRAL INFECTION [None]
  - DEPRESSION [None]
